FAERS Safety Report 9922049 (Version 1)
Quarter: 2014Q1

REPORT INFORMATION
  Report Type: Report from Study
  Country: CA (occurrence: CA)
  Receive Date: 20140225
  Receipt Date: 20140225
  Transmission Date: 20141002
  Serious: Yes (Other)
  Sender: FDA-Public Use
  Company Number: CA-TEVA-464238USA

PATIENT
  Age: 78 Year
  Sex: Male
  Weight: 82.4 kg

DRUGS (8)
  1. DOXORUBICIN [Suspect]
     Indication: METASTASES TO SOFT TISSUE
     Dates: start: 20130625
  2. DOXORUBICIN [Suspect]
     Dosage: 75 MG/M2/151 MG BOLUS
     Dates: start: 20130715, end: 20130715
  3. INVESTIGATIONAL DRUG [Suspect]
     Indication: METASTASES TO SOFT TISSUE
     Dates: start: 20130625
  4. INVESTIGATIONAL DRUG [Suspect]
     Dates: start: 20130722, end: 20130722
  5. FLOMAX [Concomitant]
     Dates: start: 2009
  6. AVODART [Concomitant]
     Dates: start: 2009
  7. ASA [Concomitant]
     Dates: start: 2009
  8. AVALIDE [Concomitant]
     Dates: start: 2005

REACTIONS (1)
  - Pneumothorax [Recovered/Resolved]
